FAERS Safety Report 10276703 (Version 1)
Quarter: 2014Q3

REPORT INFORMATION
  Report Type: Spontaneous
  Country: US (occurrence: None)
  Receive Date: 20140701
  Receipt Date: 20140701
  Transmission Date: 20150326
  Serious: Yes (Other)
  Sender: FDA-Public Use
  Company Number: None

PATIENT
  Age: 29 Year
  Sex: Female
  Weight: 67.59 kg

DRUGS (3)
  1. STRIANT [Suspect]
     Active Substance: TESTOSTERONE
     Indication: BLOOD TESTOSTERONE DECREASED
     Dosage: 1 TAB  QD  ORAL
     Route: 048
  2. STRIANT [Suspect]
     Active Substance: TESTOSTERONE
     Indication: FATIGUE
     Dosage: 1 TAB  QD  ORAL
     Route: 048
  3. STRIANT [Suspect]
     Active Substance: TESTOSTERONE
     Indication: MENSTRUATION IRREGULAR
     Dosage: 1 TAB  QD  ORAL
     Route: 048

REACTIONS (2)
  - Hepatic enzyme increased [None]
  - Off label use [None]

NARRATIVE: CASE EVENT DATE: 20140623
